FAERS Safety Report 10486754 (Version 1)
Quarter: 2014Q3

REPORT INFORMATION
  Report Type: Spontaneous
  Country: DE (occurrence: None)
  Receive Date: 20140929
  Receipt Date: 20140929
  Transmission Date: 20150326
  Serious: Yes (Life-Threatening, Other)
  Sender: FDA-Public Use
  Company Number: 2014-20401

PATIENT
  Sex: Male

DRUGS (7)
  1. L-THYROXIN (LEVOTHYROXINE SODIUM) [Concomitant]
  2. DICLOFENAC [Concomitant]
     Active Substance: DICLOFENAC
  3. RAMPRIL [Concomitant]
  4. EYLEA [Suspect]
     Active Substance: AFLIBERCEPT
     Indication: PRODUCT USED FOR UNKNOWN INDICATION
     Dosage: UNK
  5. ALLOPURINOL. [Concomitant]
     Active Substance: ALLOPURINOL
  6. VERAMEX (VERAPAMIL HYDROCHLORIDE) [Concomitant]
  7. NOVAMINSULFON (METAMIZOLE SODIUM) [Concomitant]
     Active Substance: METAMIZOLE SODIUM

REACTIONS (1)
  - Circulatory collapse [None]
